FAERS Safety Report 7784772-4 (Version None)
Quarter: 2011Q3

REPORT INFORMATION
  Report Type: 
  Country: None (occurrence: None)
  Receive Date: 20110928
  Receipt Date: 20110916
  Transmission Date: 20111222
  Serious: Yes (Life-Threatening, Hospitalization, Other)
  Sender: FDA-Public Use
  Company Number: JP-PFIZER INC-2011222978

PATIENT
  Age: 74 Year
  Sex: Male

DRUGS (3)
  1. AMIODARONE HCL [Suspect]
     Indication: CARDIAC OUTPUT
     Dosage: 1.25 MG/ML AT 10 ML/MIN
     Route: 042
     Dates: start: 20110911, end: 20110911
  2. AMIODARONE HCL [Suspect]
     Indication: VENTRICULAR TACHYCARDIA
     Dosage: 1.50 MG/ML AT 33 ML/HR
     Route: 042
     Dates: start: 20110911, end: 20110911
  3. AMIODARONE HCL [Suspect]
     Dosage: 1.50 MG/ML AT 17 ML/HR
     Route: 042
     Dates: start: 20110911, end: 20110912

REACTIONS (1)
  - LIVER DISORDER [None]
